FAERS Safety Report 4290989-6 (Version None)
Quarter: 2004Q1

REPORT INFORMATION
  Report Type: 
  Country: None (occurrence: None)
  Receive Date: 20040211
  Receipt Date: 20031023
  Transmission Date: 20041129
  Serious: No
  Sender: FDA-Public Use
  Company Number: US-GLAXOSMITHKLINE-A0431405A

PATIENT
  Age: 64 Year
  Sex: Male

DRUGS (5)
  1. PAXIL [Suspect]
     Indication: DEPRESSION
     Dosage: 20MG PER DAY
     Route: 048
     Dates: start: 20031001
  2. MIRAPEX [Concomitant]
  3. CARBIDOPA AND LEVODOPA [Concomitant]
  4. DIOVAN [Concomitant]
  5. TOPROL-XL [Concomitant]

REACTIONS (1)
  - ANORGASMIA [None]
